FAERS Safety Report 21853517 (Version 1)
Quarter: 2023Q1

REPORT INFORMATION
  Report Type: Spontaneous
  Country: US (occurrence: None)
  Receive Date: 20230111
  Receipt Date: 20230111
  Transmission Date: 20230418
  Serious: Yes (Other)
  Sender: FDA-Public Use
  Company Number: None

PATIENT
  Age: 48 Year
  Sex: Male
  Weight: 85.05 kg

DRUGS (1)
  1. EVUSHELD [Suspect]
     Active Substance: CILGAVIMAB\TIXAGEVIMAB
     Indication: COVID-19 prophylaxis
     Dosage: OTHER FREQUENCY : (2) 1.5 ML INJ.;?
     Route: 030
     Dates: start: 20220505

REACTIONS (12)
  - Rash [None]
  - Cough [None]
  - Respiratory disorder [None]
  - Swelling face [None]
  - Vision blurred [None]
  - Rash pruritic [None]
  - Sneezing [None]
  - Urticaria [None]
  - Fatigue [None]
  - Paraesthesia [None]
  - Hypoaesthesia [None]
  - Hypoaesthesia [None]

NARRATIVE: CASE EVENT DATE: 20220601
